FAERS Safety Report 13156925 (Version 2)
Quarter: 2017Q1

REPORT INFORMATION
  Report Type: Spontaneous
  Country: BR (occurrence: BR)
  Receive Date: 20170127
  Receipt Date: 20170127
  Transmission Date: 20170428
  Serious: Yes (Other)
  Sender: FDA-Public Use
  Company Number: BR-ASTRAZENECA-2017SE05914

PATIENT
  Age: 48 Year
  Sex: Female

DRUGS (5)
  1. PALBOCICLIB [Suspect]
     Active Substance: PALBOCICLIB
     Route: 065
  2. PACLITAXEL. [Suspect]
     Active Substance: PACLITAXEL
     Indication: BREAST CANCER METASTATIC
     Route: 065
  3. GOSSERELIN [Concomitant]
  4. ANASTROZOLE. [Suspect]
     Active Substance: ANASTROZOLE
     Indication: INVASIVE DUCTAL BREAST CARCINOMA
     Route: 048
     Dates: start: 201608
  5. TAMOXIFEN [Suspect]
     Active Substance: TAMOXIFEN
     Indication: BREAST CANCER METASTATIC
     Route: 048

REACTIONS (2)
  - Malignant neoplasm progression [Unknown]
  - Cancer pain [Unknown]

NARRATIVE: CASE EVENT DATE: 201611
